FAERS Safety Report 6173768-4 (Version None)
Quarter: 2009Q2

REPORT INFORMATION
  Report Type: 
  Country: None (occurrence: None)
  Receive Date: 20090429
  Receipt Date: 20090429
  Transmission Date: 20091009
  Serious: Yes (Other)
  Sender: FDA-Public Use
  Company Number: None

PATIENT
  Age: 47 Year
  Sex: Female
  Weight: 70.7611 kg

DRUGS (1)
  1. CRESTOR [Suspect]
     Indication: LOW DENSITY LIPOPROTEIN
     Dosage: 1X PO
     Route: 048
     Dates: start: 20080901, end: 20081117

REACTIONS (4)
  - FEELING COLD [None]
  - MUSCLE DISORDER [None]
  - PALPITATIONS [None]
  - TREMOR [None]
